FAERS Safety Report 4639106-0 (Version None)
Quarter: 2005Q2

REPORT INFORMATION
  Report Type: 
  Country: None (occurrence: None)
  Receive Date: 20050419
  Receipt Date: 20040830
  Transmission Date: 20051028
  Serious: Yes (Hospitalization)
  Sender: FDA-Public Use
  Company Number: PHBS2004IT11483

PATIENT
  Age: 19 Year
  Sex: Male

DRUGS (5)
  1. CLOZAPINE [Suspect]
     Indication: SCHIZOAFFECTIVE DISORDER
     Dosage: 300 MG/D
     Route: 065
  2. CLOZAPINE [Suspect]
     Dosage: 1000 MG/D
     Route: 065
  3. VENLAFAXINE (NGX) [Suspect]
     Indication: SCHIZOAFFECTIVE DISORDER
     Dosage: 150 MG/D
     Route: 065
  4. VENLAFAXINE (NGX) [Suspect]
     Dosage: 900 MG/D
     Route: 065
  5. CANNABIS [Suspect]

REACTIONS (13)
  - AGITATION [None]
  - ALANINE AMINOTRANSFERASE INCREASED [None]
  - ASPARTATE AMINOTRANSFERASE INCREASED [None]
  - BLOOD CANNABINOIDS [None]
  - BLOOD CREATINE PHOSPHOKINASE INCREASED [None]
  - BLOOD PRESSURE ABNORMAL [None]
  - COMA [None]
  - DELIRIUM [None]
  - LEUKOCYTOSIS [None]
  - MYOGLOBIN BLOOD INCREASED [None]
  - NEUROLEPTIC MALIGNANT SYNDROME [None]
  - OVERDOSE [None]
  - PYREXIA [None]
